FAERS Safety Report 5167251-2 (Version None)
Quarter: 2006Q4

REPORT INFORMATION
  Report Type: 
  Country: None (occurrence: None)
  Receive Date: 20061207
  Receipt Date: 20061204
  Transmission Date: 20070319
  Serious: Yes (Death)
  Sender: FDA-Public Use
  Company Number: US-ROXANE LABORATORIES, INC-2006-DE-06461GD

PATIENT
  Age: 71 Year
  Sex: Female

DRUGS (2)
  1. PREDNISONE TAB [Suspect]
     Indication: SARCOIDOSIS
     Dosage: 20 MG/10 MG QOD (ALTERNATE DAYS)
  2. TREPROSTINIL [Suspect]
     Indication: PULMONARY HYPERTENSION
     Route: 058

REACTIONS (2)
  - PULMONARY HYPERTENSION [None]
  - RIGHT VENTRICULAR FAILURE [None]
